FAERS Safety Report 6114582-5 (Version None)
Quarter: 2009Q1

REPORT INFORMATION
  Report Type: 
  Country: None (occurrence: None)
  Receive Date: 20090313
  Receipt Date: 20090306
  Transmission Date: 20090719
  Serious: Yes (Death, Hospitalization, Other)
  Sender: FDA-Public Use
  Company Number: DE-BAYER-200815673GPV

PATIENT
  Age: 74 Year
  Sex: Female

DRUGS (9)
  1. ALEMTUZUMAB [Suspect]
     Indication: B-CELL SMALL LYMPHOCYTIC LYMPHOMA
     Route: 058
     Dates: start: 20070926, end: 20080227
  2. FLUDARABINE PHOSPHATE [Suspect]
     Indication: B-CELL SMALL LYMPHOCYTIC LYMPHOMA
     Route: 042
     Dates: start: 20070926, end: 20071219
  3. CYCLOPHOSPHAMIDE [Suspect]
     Indication: B-CELL SMALL LYMPHOCYTIC LYMPHOMA
     Route: 042
     Dates: start: 20070926, end: 20071219
  4. TAVEGIL [Suspect]
     Indication: PREMEDICATION
     Dosage: AS USED: 2 MG
     Route: 042
     Dates: start: 20070926, end: 20080229
  5. PREDNISOLONE [Suspect]
     Indication: PREMEDICATION
     Dosage: AS USED: 100 MG
     Route: 042
     Dates: start: 20070926, end: 20080227
  6. PARACETAMOL [Suspect]
     Indication: PREMEDICATION
     Dosage: AS USED: 1000 MG
     Route: 048
     Dates: start: 20070926, end: 20080227
  7. KEVATRIL [Concomitant]
     Indication: PROPHYLAXIS
     Dosage: AS USED: 3 MG
     Route: 042
     Dates: start: 20070926, end: 20080227
  8. DEXAMETHASONE TAB [Concomitant]
     Indication: PROPHYLAXIS
     Dosage: AS USED: 8 MG
     Route: 042
     Dates: start: 20070926, end: 20080227
  9. UROMITEXAN [Concomitant]
     Indication: PROPHYLAXIS
     Dosage: TOTAL DAILY DOSE: 200 MG
     Route: 042
     Dates: start: 20070926, end: 20080227

REACTIONS (11)
  - ANOREXIA [None]
  - APHASIA [None]
  - CENTRAL NERVOUS SYSTEM LYMPHOMA [None]
  - DEATH [None]
  - DIZZINESS [None]
  - ENCEPHALITIS [None]
  - METASTASES TO CENTRAL NERVOUS SYSTEM [None]
  - NAUSEA [None]
  - ORAL HERPES [None]
  - VOMITING [None]
  - WEIGHT DECREASED [None]
